FAERS Safety Report 7916491-5 (Version None)
Quarter: 2011Q4

REPORT INFORMATION
  Report Type: 
  Country: None (occurrence: None)
  Receive Date: 20111114
  Receipt Date: 20111104
  Transmission Date: 20120403
  Serious: Yes (Other)
  Sender: FDA-Public Use
  Company Number: ACO_26856_2011

PATIENT
  Age: 55 Year
  Sex: Female
  Weight: 77.1 kg

DRUGS (3)
  1. BACLOFEN [Concomitant]
  2. AMPYRA [Suspect]
     Indication: GAIT DISTURBANCE
     Dosage: 10 MG, BID, ORAL
     Route: 048
     Dates: start: 20100501
  3. COPAXONE [Concomitant]

REACTIONS (1)
  - BREAST CANCER FEMALE [None]
